FAERS Safety Report 7535552-6 (Version None)
Quarter: 2011Q2

REPORT INFORMATION
  Report Type: 
  Country: None (occurrence: None)
  Receive Date: 20110609
  Receipt Date: 20110530
  Transmission Date: 20111010
  Serious: Yes (Other)
  Sender: FDA-Public Use
  Company Number: GB-JNJFOC-20110600630

PATIENT
  Sex: Female

DRUGS (1)
  1. TOPAMAX [Suspect]
     Indication: PRODUCT USED FOR UNKNOWN INDICATION
     Route: 048
     Dates: start: 20100501, end: 20110301

REACTIONS (4)
  - SEXUAL DYSFUNCTION [None]
  - SENSORY LOSS [None]
  - ADVERSE DRUG REACTION [None]
  - LOSS OF BLADDER SENSATION [None]
